FAERS Safety Report 10371437 (Version 1)
Quarter: 2014Q3

REPORT INFORMATION
  Report Type: Spontaneous
  Country: JP (occurrence: JP)
  Receive Date: 20140808
  Receipt Date: 20140808
  Transmission Date: 20150326
  Serious: Yes (Other)
  Sender: FDA-Public Use
  Company Number: PHHY2012JP133970

PATIENT
  Age: 74 Year
  Sex: Male

DRUGS (6)
  1. METGLUCO [Concomitant]
     Active Substance: METFORMIN HYDROCHLORIDE
  2. NESINA [Concomitant]
     Active Substance: ALOGLIPTIN BENZOATE
  3. TASIGNA [Suspect]
     Active Substance: NILOTINIB
     Indication: CHRONIC MYELOID LEUKAEMIA
     Dosage: 600 MG, DAILY
  4. AMARYL [Concomitant]
     Active Substance: GLIMEPIRIDE
  5. ASPIRIN. [Concomitant]
     Active Substance: ASPIRIN
  6. TICLOPIDIN [Concomitant]
     Active Substance: TICLOPIDINE

REACTIONS (2)
  - Angina pectoris [Unknown]
  - Blood glucose increased [Unknown]
